FAERS Safety Report 14761868 (Version 3)
Quarter: 2020Q3

REPORT INFORMATION
  Report Type: Spontaneous
  Country: US (occurrence: US)
  Receive Date: 20180416
  Receipt Date: 20200921
  Transmission Date: 20201102
  Serious: No
  Sender: FDA-Public Use
  Company Number: US-SUN PHARMACEUTICAL INDUSTRIES LTD-2018US-169801

PATIENT
  Age: 56 Year
  Sex: Male

DRUGS (7)
  1. AMOXICILLIN/CLAVULANATE [Suspect]
     Active Substance: AMOXICILLIN\CLAVULANATE POTASSIUM
     Indication: BACTERIAL PYELONEPHRITIS
     Dosage: DAY ?13 TO ?9
     Route: 065
  2. PIPERACILLIN/TAZOBACTAM [Suspect]
     Active Substance: PIPERACILLIN SODIUM\TAZOBACTAM SODIUM
     Indication: BACTERIAL PYELONEPHRITIS
     Dosage: DAY ?17 TO ?14
     Route: 065
  3. CEFTRIAXONE. [Suspect]
     Active Substance: CEFTRIAXONE
     Indication: BACTERIAL PYELONEPHRITIS
     Dosage: DAY ?30 TO ?27
     Route: 065
  4. CIPROFLOXACIN. [Suspect]
     Active Substance: CIPROFLOXACIN
     Indication: BACTERIAL PYELONEPHRITIS
     Dosage: DAY ?13 TO ?9
     Route: 065
  5. METRONIDAZOLE. [Suspect]
     Active Substance: METRONIDAZOLE
     Indication: BACTERIAL PYELONEPHRITIS
     Dosage: DAY ?17 TO ?14
     Route: 065
  6. CEFALEXIN [Suspect]
     Active Substance: CEPHALEXIN
     Indication: BACTERIAL PYELONEPHRITIS
     Dosage: DAY ?26 TO ?20
     Route: 065
  7. CEFALEXIN [Suspect]
     Active Substance: CEPHALEXIN
     Dosage: DAY ?13
     Route: 065

REACTIONS (1)
  - No adverse event [Unknown]
